FAERS Safety Report 7211450-2 (Version None)
Quarter: 2011Q1

REPORT INFORMATION
  Report Type: 
  Country: None (occurrence: None)
  Receive Date: 20110105
  Receipt Date: 20101111
  Transmission Date: 20110831
  Serious: No
  Sender: FDA-Public Use
  Company Number: US-BAYER-201018688BCC

PATIENT
  Sex: Female
  Weight: 70.455 kg

DRUGS (11)
  1. L-CARNITINE [Concomitant]
     Dosage: AS USED DOSE: UNK
     Route: 065
  2. AVONEX [Concomitant]
     Route: 065
  3. LIPOFLAVONOID [Concomitant]
     Dosage: AS USED DOSE: UNK
     Route: 065
  4. CO Q10 [Concomitant]
     Dosage: AS USED DOSE: UNK
     Route: 065
  5. LACTOBACILLUS ACIDOPHILUS [Concomitant]
     Dosage: AS USED DOSE: UNK
     Route: 065
  6. VITAMIN D3 [Concomitant]
     Dosage: AS USED DOSE: UNK
     Route: 065
  7. LOVAZA [Concomitant]
     Dosage: AS USED DOSE: UNK
     Route: 065
  8. ALEVE [Suspect]
     Indication: INFLUENZA LIKE ILLNESS
     Dosage: BOTTLE COUNT 100S
     Route: 048
     Dates: start: 20100720
  9. VITAMIN B-12 [Concomitant]
     Dosage: AS USED DOSE: UNK
     Route: 065
  10. ALPHA LIPOIC ACID [Concomitant]
     Dosage: AS USED DOSE: UNK
     Route: 065
  11. CAMELLIA SINENSIS [Concomitant]
     Route: 065

REACTIONS (1)
  - DYSGEUSIA [None]
